FAERS Safety Report 10862194 (Version 1)
Quarter: 2015Q1

REPORT INFORMATION
  Report Type: Spontaneous
  Country: US (occurrence: None)
  Receive Date: 20150219
  Receipt Date: 20150219
  Transmission Date: 20150721
  Serious: Yes (Hospitalization)
  Sender: FDA-Public Use
  Company Number: None

PATIENT
  Sex: Male
  Weight: 71 kg

DRUGS (14)
  1. PROGRAF [Concomitant]
     Active Substance: TACROLIMUS\TACROLIMUS ANHYDROUS
  2. MYFORTIC [Concomitant]
     Active Substance: MYCOPHENOLATE SODIUM
  3. NEURONTIN [Concomitant]
     Active Substance: GABAPENTIN
  4. MEGESTROL [Concomitant]
     Active Substance: MEGESTROL
  5. LEVETIRACETAM. [Concomitant]
     Active Substance: LEVETIRACETAM
  6. AMLODIPINE BESYLATE. [Concomitant]
     Active Substance: AMLODIPINE BESYLATE
  7. SOVALDI [Suspect]
     Active Substance: SOFOSBUVIR
     Indication: HEPATITIS C
     Dosage: 400MG, 1XDAILY, PO
     Route: 048
     Dates: start: 20140926
  8. TAZADONE [Concomitant]
  9. CALCIUM ACETATE. [Concomitant]
     Active Substance: CALCIUM ACETATE
  10. WARFIN SODIUM [Concomitant]
  11. ALPRAZOLAM. [Concomitant]
     Active Substance: ALPRAZOLAM
  12. XIFAXAN [Concomitant]
     Active Substance: RIFAXIMIN
  13. MYCOPHEPENOLATE [Concomitant]
  14. RIBAVIRIN. [Suspect]
     Active Substance: RIBAVIRIN
     Indication: HEPATITIS C
     Route: 048
     Dates: start: 20140926

REACTIONS (3)
  - Myelodysplastic syndrome [None]
  - Gastrointestinal haemorrhage [None]
  - Iron deficiency anaemia [None]

NARRATIVE: CASE EVENT DATE: 20150128
